FAERS Safety Report 9560744 (Version 1)
Quarter: 2013Q3

REPORT INFORMATION
  Report Type: Spontaneous
  Country: US (occurrence: US)
  Receive Date: 20130927
  Receipt Date: 20130927
  Transmission Date: 20140515
  Serious: Yes (Hospitalization)
  Sender: FDA-Public Use
  Company Number: US-BAYER-2013-116955

PATIENT
  Age: 45 Year
  Sex: Female

DRUGS (5)
  1. BEYAZ [Suspect]
  2. YAZ [Suspect]
  3. LEVOTHYROXINE [Concomitant]
     Dosage: UNK
     Dates: start: 20120808
  4. AZITHROMYCIN [Concomitant]
  5. CEFTRIAXONE [Concomitant]

REACTIONS (1)
  - Pulmonary embolism [None]
